FAERS Safety Report 6685583-3 (Version None)
Quarter: 2010Q2

REPORT INFORMATION
  Report Type: 
  Country: None (occurrence: None)
  Receive Date: 20100419
  Receipt Date: 20100409
  Transmission Date: 20101027
  Serious: No
  Sender: FDA-Public Use
  Company Number: US-BIOGENIDEC-2010BI012261

PATIENT
  Age: 58 Year
  Sex: Female

DRUGS (2)
  1. TYSABRI [Suspect]
     Indication: MULTIPLE SCLEROSIS
     Route: 042
     Dates: start: 20080319, end: 20091201
  2. TYSABRI [Suspect]
     Route: 042
     Dates: start: 20100201

REACTIONS (5)
  - ASTHENIA [None]
  - DEPRESSION [None]
  - DYSPNOEA [None]
  - SEASONAL ALLERGY [None]
  - STRESS [None]
